FAERS Safety Report 12213338 (Version 1)
Quarter: 2016Q1

REPORT INFORMATION
  Report Type: Spontaneous
  Country: US (occurrence: None)
  Receive Date: 20160325
  Receipt Date: 20160325
  Transmission Date: 20160526
  Serious: No
  Sender: FDA-Public Use
  Company Number: None

PATIENT
  Age: 17 Year
  Sex: Male
  Weight: 63.5 kg

DRUGS (1)
  1. NAPROXEN, 500 MG [Suspect]
     Active Substance: NAPROXEN
     Indication: PAIN
     Route: 048
     Dates: start: 20160312, end: 20160323

REACTIONS (1)
  - False positive investigation result [None]

NARRATIVE: CASE EVENT DATE: 20160323
